FAERS Safety Report 5838397-8 (Version None)
Quarter: 2008Q3

REPORT INFORMATION
  Report Type: 
  Country: None (occurrence: None)
  Receive Date: 20080806
  Receipt Date: 20080728
  Transmission Date: 20090109
  Serious: Yes (Other)
  Sender: FDA-Public Use
  Company Number: 08H-163-0314665-00

PATIENT
  Age: 64 Year
  Sex: Female
  Weight: 54.8852 kg

DRUGS (9)
  1. MORPHINE SULFATE INJ [Suspect]
     Indication: ANALGESIC THERAPY
     Dosage: SEE IMAGE
  2. METHADONE HCL [Concomitant]
  3. HYDROCODONE/ACETAMINOPHEN(HYDROCODONE/ACETAMINOPHEN)(-HYDROCODONE/ACET [Concomitant]
  4. GABAPETIN (GABAPENTIN) [Concomitant]
  5. BACLOFEN (BACLOEEN) [Concomitant]
  6. MORPHINE [Concomitant]
  7. OXYMORPHONE (OXYMORPHONE) [Concomitant]
  8. OXYCODONE HCL [Concomitant]
  9. FENTANYL-100 [Concomitant]

REACTIONS (2)
  - OEDEMA PERIPHERAL [None]
  - WEIGHT INCREASED [None]
